FAERS Safety Report 11151009 (Version 1)
Quarter: 2015Q2

REPORT INFORMATION
  Report Type: Spontaneous
  Country: JP (occurrence: None)
  Receive Date: 20150528
  Receipt Date: 20150528
  Transmission Date: 20150821
  Serious: Yes (Other)
  Sender: FDA-Public Use
  Company Number: JP-20150095

PATIENT
  Age: 63 Year
  Sex: Male

DRUGS (3)
  1. LIPIODOL ULTRA-FLUIDE [Suspect]
     Active Substance: ETHIODIZED OIL
     Indication: TRANSCATHETER ARTERIAL CHEMOEMBOLISATION
     Route: 013
     Dates: start: 20130807, end: 20130807
  2. EPIRUBICIN [Concomitant]
     Active Substance: EPIRUBICIN
  3. GELATIN [Concomitant]
     Active Substance: GELATIN

REACTIONS (2)
  - Liver abscess [None]
  - Alanine aminotransferase increased [None]

NARRATIVE: CASE EVENT DATE: 20131002
